FAERS Safety Report 7829798-7 (Version None)
Quarter: 2011Q4

REPORT INFORMATION
  Report Type: 
  Country: None (occurrence: None)
  Receive Date: 20111021
  Receipt Date: 20111013
  Transmission Date: 20120403
  Serious: Yes (Other)
  Sender: FDA-Public Use
  Company Number: US-JNJFOC-20111006346

PATIENT
  Age: 61 Year
  Sex: Male
  Weight: 110.68 kg

DRUGS (2)
  1. INVESTIGATIONAL DRUG [Suspect]
     Indication: PRODUCT USED FOR UNKNOWN INDICATION
     Route: 065
     Dates: start: 20110803, end: 20110803
  2. DOXORUBICIN HCL [Suspect]
     Indication: SARCOMA
     Route: 042
     Dates: start: 20110803, end: 20110831

REACTIONS (1)
  - VIITH NERVE PARALYSIS [None]
